FAERS Safety Report 13945611 (Version 2)
Quarter: 2017Q4

REPORT INFORMATION
  Report Type: Spontaneous
  Country: GB (occurrence: GB)
  Receive Date: 20170907
  Receipt Date: 20171005
  Transmission Date: 20180320
  Serious: Yes (Hospitalization, Other)
  Sender: FDA-Public Use
  Company Number: GB-ORION CORPORATION ORION PHARMA-TREX2017-2437

PATIENT
  Age: 71 Year
  Sex: Female

DRUGS (11)
  1. COCODAMOL [Concomitant]
     Active Substance: ACETAMINOPHEN\CODEINE PHOSPHATE
     Dosage: STRENGTH: 15/500 MG, AT NIGHT
     Route: 065
  2. MELOPHTHAL [Concomitant]
     Dosage: STRENGTH: 1 PERCENT
     Route: 047
  3. ADCAL D3 [Concomitant]
     Active Substance: CALCIUM CARBONATE\CHOLECALCIFEROL
     Dosage: STRENGTH: 1500MG/400 UNIT
     Route: 065
  4. METHOTREXATE (TRADE NAME UNKNOWN) [Suspect]
     Active Substance: METHOTREXATE
     Dosage: STRENGTH: 2.5 MG
     Route: 065
  5. FOLIC ACID. [Concomitant]
     Active Substance: FOLIC ACID
     Dosage: EACH DAY EXCEPT TUESDAYS
     Route: 065
  6. MELOPHTHAL [Concomitant]
     Dosage: STRENGTH: 1%; AS NEEDED USED DOSE UNITS ABOUT 5 TIMES A DAY IN EACH EYE
     Route: 047
  7. CLOPIDOGREL [Concomitant]
     Active Substance: CLOPIDOGREL BISULFATE
     Route: 065
  8. FOLIC ACID. [Concomitant]
     Active Substance: FOLIC ACID
     Route: 065
  9. PARACETAMOL [Concomitant]
     Active Substance: ACETAMINOPHEN
     Dosage: STRENGTH: 500 MG; AS NEEDED FOUR TIMES A DAY
     Route: 065
  10. SIMVASTATIN. [Concomitant]
     Active Substance: SIMVASTATIN
     Dosage: AT NIGHT
     Route: 065
  11. OMEPRAZOLE. [Concomitant]
     Active Substance: OMEPRAZOLE
     Route: 065

REACTIONS (3)
  - Blast cells present [Unknown]
  - Clostridium difficile infection [Unknown]
  - Pancytopenia [Recovered/Resolved]
